FAERS Safety Report 23324940 (Version 1)
Quarter: 2023Q4

REPORT INFORMATION
  Report Type: Spontaneous
  Country: US (occurrence: US)
  Receive Date: 20231221
  Receipt Date: 20231221
  Transmission Date: 20240109
  Serious: Yes (Hospitalization)
  Sender: FDA-Public Use
  Company Number: US-STRIDES ARCOLAB LIMITED-2023SP016746

PATIENT
  Age: 3 Year
  Sex: Male

DRUGS (25)
  1. PHENOBARBITAL [Suspect]
     Active Substance: PHENOBARBITAL
     Indication: Sedative therapy
     Dosage: 60 MILLIGRAM, DAILY (AT BED TIME)
     Route: 042
  2. PHENOBARBITAL [Suspect]
     Active Substance: PHENOBARBITAL
     Indication: Agitation
     Dosage: UNK, (RESCUE PHENOBARBITAL THERAPY RECEIVED AT BEDTIME)
     Route: 065
  3. PHENOBARBITAL [Suspect]
     Active Substance: PHENOBARBITAL
     Indication: Irritability
  4. TRAZODONE [Suspect]
     Active Substance: TRAZODONE HYDROCHLORIDE
     Indication: Sedative therapy
     Dosage: 12.5 MILLIGRAM, DAILY (AT BED TIME)
     Route: 065
  5. TRAZODONE [Suspect]
     Active Substance: TRAZODONE HYDROCHLORIDE
     Indication: Agitation
  6. TRAZODONE [Suspect]
     Active Substance: TRAZODONE HYDROCHLORIDE
     Indication: Irritability
  7. GABAPENTIN [Suspect]
     Active Substance: GABAPENTIN
     Indication: Analgesic therapy
     Dosage: 35 MILLIGRAM/KILOGRAM PER DOSE
     Route: 065
  8. GABAPENTIN [Suspect]
     Active Substance: GABAPENTIN
     Indication: Agitation
  9. GABAPENTIN [Suspect]
     Active Substance: GABAPENTIN
     Indication: Irritability
  10. MORPHINE SULFATE [Suspect]
     Active Substance: MORPHINE SULFATE
     Indication: Analgesic therapy
     Dosage: 18 MILLIGRAM/DAY
     Route: 048
  11. MORPHINE SULFATE [Suspect]
     Active Substance: MORPHINE SULFATE
     Indication: Agitation
  12. MORPHINE SULFATE [Suspect]
     Active Substance: MORPHINE SULFATE
     Indication: Irritability
  13. HALOPERIDOL [Suspect]
     Active Substance: HALOPERIDOL
     Indication: Sedative therapy
     Dosage: UNK, AT BED TIME
     Route: 065
  14. HALOPERIDOL [Suspect]
     Active Substance: HALOPERIDOL
     Indication: Agitation
  15. HALOPERIDOL [Suspect]
     Active Substance: HALOPERIDOL
     Indication: Irritability
  16. ACETAMINOPHEN [Suspect]
     Active Substance: ACETAMINOPHEN
     Indication: Analgesic therapy
     Dosage: 15 MILLIGRAM/KILOGRAM, EVERY 6 HRS
     Route: 065
  17. ACETAMINOPHEN [Suspect]
     Active Substance: ACETAMINOPHEN
     Indication: Agitation
  18. ACETAMINOPHEN [Suspect]
     Active Substance: ACETAMINOPHEN
     Indication: Irritability
  19. CLONIDINE [Suspect]
     Active Substance: CLONIDINE
     Indication: Analgesic therapy
     Dosage: UNK
     Route: 065
  20. CLONIDINE [Suspect]
     Active Substance: CLONIDINE
     Indication: Agitation
  21. CLONIDINE [Suspect]
     Active Substance: CLONIDINE
     Indication: Irritability
  22. LORAZEPAM [Suspect]
     Active Substance: LORAZEPAM
     Indication: Sedative therapy
     Dosage: UNK, AT BED TIME
     Route: 065
  23. LORAZEPAM [Suspect]
     Active Substance: LORAZEPAM
     Indication: Agitation
  24. LORAZEPAM [Suspect]
     Active Substance: LORAZEPAM
     Indication: Irritability
  25. METHADONE [Concomitant]
     Active Substance: METHADONE HYDROCHLORIDE
     Indication: Central pain syndrome
     Dosage: 0.2 MILLIGRAM/KILOGRAM
     Route: 042

REACTIONS (1)
  - Drug ineffective for unapproved indication [Unknown]
